FAERS Safety Report 25815471 (Version 1)
Quarter: 2025Q3

REPORT INFORMATION
  Report Type: Spontaneous
  Country: US (occurrence: US)
  Receive Date: 20250918
  Receipt Date: 20250918
  Transmission Date: 20251021
  Serious: Yes (Other)
  Sender: COOPERSURGICAL
  Company Number: US-COOPERSURGICAL, INC.-2025CPS006691

PATIENT
  Sex: Female
  Weight: 61.224 kg

DRUGS (1)
  1. PARAGARD T 380A [Suspect]
     Active Substance: COPPER
     Indication: Contraception
     Route: 015
     Dates: start: 20170103

REACTIONS (19)
  - High risk pregnancy [Recovered/Resolved]
  - Unwanted pregnancy [Recovered/Resolved]
  - Premature delivery [Recovered/Resolved]
  - Caesarean section [Recovered/Resolved]
  - Thrombosis [Recovered/Resolved]
  - Device breakage [Recovered/Resolved]
  - Foreign body in reproductive tract [Recovered/Resolved]
  - Complication of device removal [Recovered/Resolved]
  - Sensation of foreign body [Unknown]
  - Emotional distress [Recovered/Resolved]
  - Anxiety [Recovered/Resolved]
  - Premature labour [Recovered/Resolved]
  - Heavy menstrual bleeding [Unknown]
  - Vaginal infection [Unknown]
  - Abnormal uterine bleeding [Recovered/Resolved]
  - Menstruation irregular [Recovered/Resolved]
  - Discomfort [Recovered/Resolved]
  - Device dislocation [Recovered/Resolved]
  - Pain [Recovered/Resolved]

NARRATIVE: CASE EVENT DATE: 20170101
